FAERS Safety Report 10006692 (Version 2)
Quarter: 2014Q2

REPORT INFORMATION
  Report Type: Spontaneous
  Country: US (occurrence: US)
  Receive Date: 20140313
  Receipt Date: 20140415
  Transmission Date: 20141212
  Serious: Yes (Hospitalization)
  Sender: FDA-Public Use
  Company Number: US-BAYER-2014-036369

PATIENT
  Age: 21 Year
  Sex: Female
  Weight: 127.89 kg

DRUGS (1)
  1. MIRENA [Suspect]
     Dosage: 20 MCG/24HR, CONT
     Route: 015
     Dates: start: 20091102, end: 20120302

REACTIONS (19)
  - Urinary tract infection [None]
  - Pelvic pain [None]
  - Uterine perforation [None]
  - Device dislocation [None]
  - Device difficult to use [None]
  - Abdominal pain [None]
  - Pyrexia [None]
  - Injury [None]
  - Emotional distress [None]
  - Device dislocation [None]
  - Medical device complication [None]
  - Medical device discomfort [None]
  - Genital haemorrhage [None]
  - Internal injury [None]
  - Depression [None]
  - Anxiety [None]
  - Infertility female [None]
  - Depressed mood [None]
  - Fear [None]
